FAERS Safety Report 9921814 (Version 2)
Quarter: 2014Q1

REPORT INFORMATION
  Report Type: Spontaneous
  Country: US (occurrence: US)
  Receive Date: 20140225
  Receipt Date: 20140317
  Transmission Date: 20141002
  Serious: Yes (Other)
  Sender: FDA-Public Use
  Company Number: US-PFIZER INC-2014047964

PATIENT
  Age: 70 Year
  Sex: Male
  Weight: 97.5 kg

DRUGS (1)
  1. GLIPIZIDE XL [Suspect]
     Indication: DIABETES MELLITUS
     Dosage: 10 MG, 2X/DAY

REACTIONS (6)
  - Prostate cancer [Unknown]
  - Poor quality drug administered [Unknown]
  - Blood glucose increased [Recovered/Resolved]
  - Product physical issue [Unknown]
  - Glycosylated haemoglobin increased [Unknown]
  - Product size issue [Unknown]
